FAERS Safety Report 9743313 (Version 2)
Quarter: 2014Q1

REPORT INFORMATION
  Report Type: Report from Study
  Country: US (occurrence: US)
  Receive Date: 20131210
  Receipt Date: 20140325
  Transmission Date: 20141002
  Serious: Yes (Hospitalization, Disabling)
  Sender: FDA-Public Use
  Company Number: US-US-EMD SERONO, INC.-7254918

PATIENT
  Age: 59 Year
  Sex: Female

DRUGS (2)
  1. REBIF [Suspect]
     Indication: MULTIPLE SCLEROSIS
     Route: 058
     Dates: start: 20090309
  2. REBIF [Suspect]
     Dates: start: 20131230

REACTIONS (9)
  - Arthropathy [Unknown]
  - Spinal column stenosis [Unknown]
  - Dementia [Unknown]
  - Orgasm abnormal [Not Recovered/Not Resolved]
  - Spinal deformity [Unknown]
  - Weight increased [Unknown]
  - Procedural pain [Unknown]
  - Fatigue [Not Recovered/Not Resolved]
  - Injection site pain [Unknown]
